FAERS Safety Report 8541354-4 (Version None)
Quarter: 2012Q3

REPORT INFORMATION
  Report Type: 
  Country: None (occurrence: None)
  Receive Date: 20120726
  Receipt Date: 20120718
  Transmission Date: 20120928
  Serious: Yes (Death, Other)
  Sender: FDA-Public Use
  Company Number: US-ABBOTT-12P-163-0949252-00

PATIENT
  Sex: Female

DRUGS (6)
  1. ABILIFY [Concomitant]
     Indication: AFFECTIVE DISORDER
  2. HUMIRA [Suspect]
     Indication: PSORIASIS
     Route: 058
     Dates: start: 20101014, end: 20101014
  3. VERAPAMIL [Concomitant]
     Indication: MIGRAINE
  4. HUMIRA [Suspect]
     Route: 058
     Dates: start: 20101125
  5. FENOFIBRATE [Concomitant]
     Indication: HYPERLIPIDAEMIA
  6. LAMOTRIGINE [Concomitant]
     Indication: AFFECTIVE DISORDER

REACTIONS (1)
  - SARCOMA [None]
